FAERS Safety Report 5591352-8 (Version None)
Quarter: 2008Q1

REPORT INFORMATION
  Report Type: 
  Country: None (occurrence: None)
  Receive Date: 20080110
  Receipt Date: 20080110
  Transmission Date: 20080703
  Serious: Yes (Life-Threatening, Hospitalization)
  Sender: FDA-Public Use
  Company Number: None

PATIENT
  Sex: Male
  Weight: 44.4525 kg

DRUGS (2)
  1. CHILDREN'S NYQUIL   VICKS [Suspect]
     Indication: HEADACHE
     Dosage: 30 ML   1  PO
     Route: 048
  2. CHILDREN'S NYQUIL   VICKS [Suspect]
     Indication: PHARYNGOLARYNGEAL PAIN
     Dosage: 30 ML   1  PO
     Route: 048

REACTIONS (6)
  - ANURIA [None]
  - DRUG RESISTANCE [None]
  - HALLUCINATION [None]
  - LUMBAR PUNCTURE ABNORMAL [None]
  - PAIN [None]
  - PYREXIA [None]
